FAERS Safety Report 12196256 (Version 2)
Quarter: 2016Q2

REPORT INFORMATION
  Report Type: Spontaneous
  Country: ES (occurrence: ES)
  Receive Date: 20160321
  Receipt Date: 20160428
  Transmission Date: 20160815
  Serious: Yes (Life-Threatening, Hospitalization)
  Sender: FDA-Public Use
  Company Number: ES-JNJFOC-20160311201

PATIENT
  Age: 38 Year
  Sex: Female

DRUGS (9)
  1. INVEGA [Suspect]
     Active Substance: PALIPERIDONE
     Indication: EATING DISORDER
     Dosage: 6MG IN THE MORNING AND 6 MG IN THE NIGHT
     Route: 048
  2. INVEGA [Suspect]
     Active Substance: PALIPERIDONE
     Indication: SCHIZOAFFECTIVE DISORDER
     Dosage: 6MG IN THE MORNING AND 6 MG IN THE NIGHT
     Route: 048
  3. RIVOTRIL [Suspect]
     Active Substance: CLONAZEPAM
     Indication: PRODUCT USED FOR UNKNOWN INDICATION
     Route: 065
  4. ZONISAMIDE. [Concomitant]
     Active Substance: ZONISAMIDE
     Indication: EATING DISORDER
     Route: 065
  5. RIVOTRIL [Suspect]
     Active Substance: CLONAZEPAM
     Indication: PRODUCT USED FOR UNKNOWN INDICATION
     Route: 065
  6. INVEGA [Suspect]
     Active Substance: PALIPERIDONE
     Indication: SCHIZOAFFECTIVE DISORDER
     Dosage: 6 MG IN THE MORNING AND 9 MG AT NIGHT
     Route: 048
     Dates: start: 201602
  7. ARIPIPRAZOLE. [Suspect]
     Active Substance: ARIPIPRAZOLE
     Indication: PRODUCT USED FOR UNKNOWN INDICATION
     Route: 065
  8. DEPAKINE [Suspect]
     Active Substance: VALPROATE SODIUM
     Indication: PRODUCT USED FOR UNKNOWN INDICATION
     Route: 065
  9. INVEGA [Suspect]
     Active Substance: PALIPERIDONE
     Indication: EATING DISORDER
     Dosage: 6 MG IN THE MORNING AND 9 MG AT NIGHT
     Route: 048
     Dates: start: 201602

REACTIONS (3)
  - Type 1 diabetes mellitus [Unknown]
  - Ketoacidosis [Unknown]
  - Coma [Recovered/Resolved]

NARRATIVE: CASE EVENT DATE: 201603
